FAERS Safety Report 9988043 (Version 1)
Quarter: 2014Q1

REPORT INFORMATION
  Report Type: Spontaneous
  Country: BR (occurrence: BR)
  Receive Date: 20140307
  Receipt Date: 20140307
  Transmission Date: 20141002
  Serious: Yes (Other)
  Sender: FDA-Public Use
  Company Number: BR-ABBVIE-14P-020-1207789-00

PATIENT
  Sex: Female

DRUGS (2)
  1. LUVOX [Suspect]
     Indication: PRODUCT USED FOR UNKNOWN INDICATION
     Dates: start: 2003
  2. ANAFRANIL [Suspect]
     Indication: PSYCHOTHERAPY

REACTIONS (1)
  - Obsessive-compulsive disorder [Unknown]
